FAERS Safety Report 20895307 (Version 1)
Quarter: 2022Q2

REPORT INFORMATION
  Report Type: Spontaneous
  Country: US (occurrence: None)
  Receive Date: 20220528
  Receipt Date: 20220528
  Transmission Date: 20220721
  Serious: Yes (Life-Threatening, Hospitalization, Disabling)
  Sender: FDA-Public Use
  Company Number: None

PATIENT
  Age: 37 Year
  Sex: Female
  Weight: 105.75 kg

DRUGS (9)
  1. PREDNISONE [Suspect]
     Active Substance: PREDNISONE
     Indication: Multiple sclerosis
     Dosage: FREQUENCY : DAILY;?
     Route: 042
     Dates: start: 20140515, end: 20140520
  2. DEVICE [Concomitant]
     Active Substance: DEVICE
  3. ABILIFY [Concomitant]
     Active Substance: ARIPIPRAZOLE
  4. VITAMIN C [Concomitant]
     Active Substance: ASCORBIC ACID
  5. VITAMIN D [Concomitant]
     Active Substance: VITAMIN D NOS
  6. CALCIUM [Concomitant]
     Active Substance: CALCIUM
  7. FISH OIL [Concomitant]
     Active Substance: FISH OIL
  8. MAGNESIUM [Concomitant]
     Active Substance: MAGNESIUM
  9. BUPROPION [Concomitant]
     Active Substance: BUPROPION

REACTIONS (5)
  - Schizophrenia [None]
  - Anxiety [None]
  - Depression [None]
  - Post-traumatic stress disorder [None]
  - Weight increased [None]

NARRATIVE: CASE EVENT DATE: 20140528
